FAERS Safety Report 9106521 (Version 2)
Quarter: 2013Q2

REPORT INFORMATION
  Report Type: Spontaneous
  Country: US (occurrence: US)
  Receive Date: 20130221
  Receipt Date: 20130402
  Transmission Date: 20140414
  Serious: No
  Sender: FDA-Public Use
  Company Number: US-BAYER-2013-021423

PATIENT
  Age: 45 Year
  Sex: Female

DRUGS (1)
  1. MIRENA [Suspect]
     Indication: CONTRACEPTION
     Dosage: 20 MCG/24HR, CONT
     Route: 015
     Dates: start: 2007, end: 20130206

REACTIONS (2)
  - Device misuse [None]
  - Ovarian cyst [None]
